FAERS Safety Report 4347531-0 (Version None)
Quarter: 2004Q2

REPORT INFORMATION
  Report Type: 
  Country: None (occurrence: None)
  Receive Date: 20040427
  Receipt Date: 20040120
  Transmission Date: 20050107
  Serious: Yes (Other)
  Sender: FDA-Public Use
  Company Number: BE-BRISTOL-MYERS SQUIBB COMPANY-12481941

PATIENT
  Age: 41 Year
  Sex: Female

DRUGS (4)
  1. ATAZANAVIR [Suspect]
     Indication: HIV INFECTION
     Dosage: INTERRUPTED 19-JAN-2004, RESUMED 05-FEB-2004, THEN DISCONTINUED (DATE UNKNOWN).
     Route: 048
     Dates: start: 20040108, end: 20040101
  2. EFAVIRENZ [Suspect]
     Route: 048
     Dates: start: 20040108, end: 20040119
  3. NORVIR [Concomitant]
     Dosage: INTERRUPTED 1/19/2004, RESUMED 1/20/2004 400 MG TWICE DAILY, ON 2/5/2004 100 MG DAILY.
     Dates: start: 20040108
  4. TENOFOVIR [Concomitant]
     Dosage: INTERRUPTED ON 19-JAN-2004, RESUMED ON 20-JAN-2004
     Dates: start: 20040108

REACTIONS (2)
  - SWELLING FACE [None]
  - URTICARIA [None]
